FAERS Safety Report 5356535-0 (Version None)
Quarter: 2007Q2

REPORT INFORMATION
  Report Type: 
  Country: None (occurrence: None)
  Receive Date: 20070530
  Receipt Date: 20061214
  Transmission Date: 20071010
  Serious: Yes (Hospitalization, Other)
  Sender: FDA-Public Use
  Company Number: US200608006821

PATIENT

DRUGS (5)
  1. ZYPREXA [Suspect]
     Dosage: SEE IMAGE
     Dates: start: 20010201, end: 20010501
  2. ZYPREXA [Suspect]
     Dosage: SEE IMAGE
     Dates: start: 20010501, end: 20020201
  3. ZYPREXA [Suspect]
     Dosage: SEE IMAGE
     Dates: start: 20020201, end: 20020601
  4. ZYPREXA [Suspect]
     Dosage: SEE IMAGE
     Dates: start: 20020601, end: 20020801
  5. ZYPREXA [Suspect]
     Dosage: SEE IMAGE
     Dates: start: 19990101

REACTIONS (4)
  - ABDOMINAL DISCOMFORT [None]
  - DIABETES MELLITUS [None]
  - HYPERGLYCAEMIA [None]
  - STOMACH DISCOMFORT [None]
